FAERS Safety Report 11002814 (Version 1)
Quarter: 2015Q2

REPORT INFORMATION
  Report Type: Spontaneous
  Country: FR (occurrence: FR)
  Receive Date: 20150408
  Receipt Date: 20150408
  Transmission Date: 20150821
  Serious: Yes (Death, Life-Threatening, Hospitalization)
  Sender: FDA-Public Use
  Company Number: FR-SPECTRUM PHARMACEUTICALS, INC.-15-F-FR-00146

PATIENT
  Age: 63 Year
  Sex: Female

DRUGS (3)
  1. FLUOROURACIL. [Suspect]
     Active Substance: FLUOROURACIL
     Indication: COLORECTAL CANCER
     Dosage: 2400 MG/M2, UNK
     Route: 042
  2. OXALIPLATIN. [Suspect]
     Active Substance: OXALIPLATIN
     Indication: COLORECTAL CANCER
     Dosage: 85 MG/M2, UNK
     Route: 042
  3. LEUCOVORIN                         /00566701/ [Suspect]
     Active Substance: LEUCOVORIN
     Indication: COLORECTAL CANCER
     Dosage: 200 MG/M2, UNK
     Route: 042

REACTIONS (11)
  - Diarrhoea [Unknown]
  - Circulatory collapse [None]
  - Stomatitis [Unknown]
  - Mucosal inflammation [Unknown]
  - Pneumatosis [Unknown]
  - Intracranial pressure increased [Unknown]
  - Pyrexia [Unknown]
  - Pancytopenia [Unknown]
  - Necrosis [Unknown]
  - Multi-organ failure [Fatal]
  - Septic shock [Unknown]
